FAERS Safety Report 9049878 (Version 1)
Quarter: 2013Q1

REPORT INFORMATION
  Report Type: Spontaneous
  Country: US (occurrence: US)
  Receive Date: 20130205
  Receipt Date: 20130205
  Transmission Date: 20140127
  Serious: No
  Sender: FDA-Public Use
  Company Number: US-PFIZER INC-2013040907

PATIENT
  Age: 79 Year
  Sex: Female
  Weight: 56 kg

DRUGS (3)
  1. PREMARIN [Suspect]
     Indication: VULVOVAGINAL DRYNESS
     Dosage: UNK
     Route: 067
  2. PROVERA [Suspect]
     Dosage: UNK
  3. SYNTHROID [Concomitant]
     Indication: HYPOTHYROIDISM
     Dosage: 112 UG, UNK

REACTIONS (6)
  - Blood thyroid stimulating hormone increased [Unknown]
  - Weight decreased [Unknown]
  - Gastrointestinal disorder [Unknown]
  - Dry skin [Unknown]
  - Alopecia [Unknown]
  - Nasopharyngitis [Unknown]
